FAERS Safety Report 24981046 (Version 1)
Quarter: 2025Q1

REPORT INFORMATION
  Report Type: Spontaneous
  Country: US (occurrence: US)
  Receive Date: 20250218
  Receipt Date: 20250218
  Transmission Date: 20250408
  Serious: No
  Sender: MERZ
  Company Number: US-MERZ PHARMACEUTICALS, LLC-ACO_177146_2024

PATIENT
  Age: 72 Year
  Sex: Female

DRUGS (4)
  1. INBRIJA [Suspect]
     Active Substance: LEVODOPA
     Indication: Parkinson^s disease
     Dates: start: 20240419, end: 20240517
  2. INBRIJA [Suspect]
     Active Substance: LEVODOPA
     Indication: On and off phenomenon
     Dates: start: 20240419, end: 20240517
  3. INBRIJA [Suspect]
     Active Substance: LEVODOPA
     Dates: start: 20240419, end: 20240517
  4. SINEMET [Concomitant]
     Active Substance: CARBIDOPA\LEVODOPA
     Indication: Product used for unknown indication
     Route: 065

REACTIONS (8)
  - Therapeutic product effect incomplete [Not Recovered/Not Resolved]
  - Product communication issue [Not Recovered/Not Resolved]
  - Device difficult to use [Recovered/Resolved]
  - Wrong technique in device usage process [Not Recovered/Not Resolved]
  - Incorrect dose administered by device [Not Recovered/Not Resolved]
  - Product residue present [Not Recovered/Not Resolved]
  - Device issue [Not Recovered/Not Resolved]
  - Cough [Not Recovered/Not Resolved]

NARRATIVE: CASE EVENT DATE: 20240419
